FAERS Safety Report 18198062 (Version 1)
Quarter: 2020Q3

REPORT INFORMATION
  Report Type: Spontaneous
  Country: US (occurrence: US)
  Receive Date: 20200826
  Receipt Date: 20200826
  Transmission Date: 20201103
  Serious: Yes (Other)
  Sender: FDA-Public Use
  Company Number: None

PATIENT
  Age: 45 Year
  Sex: Male
  Weight: 104.7 kg

DRUGS (17)
  1. DEXAMETHASONE 6MG IV [Concomitant]
     Dates: start: 20200825
  2. ACTAMINOPHEN 650MG TABLET [Concomitant]
     Dates: start: 20200825, end: 20200825
  3. REGULAR INSULIN IV [Concomitant]
     Dates: start: 20200825
  4. PROPOFOL INFUSION [Concomitant]
     Active Substance: PROPOFOL
     Dates: start: 20200825
  5. ROCURONIUM IV [Concomitant]
     Dates: start: 20200825
  6. CEFEPIME [Concomitant]
     Active Substance: CEFEPIME HYDROCHLORIDE
     Dates: start: 20200825, end: 20200825
  7. CEFTRIAXONE 2GM IV [Concomitant]
     Dates: start: 20200825
  8. NIMBEX IV [Concomitant]
     Dates: start: 20200825, end: 20200825
  9. ZOSYN IV [Concomitant]
     Dates: start: 20200825, end: 20200825
  10. REMDESIVIR (EUA SUPPLY) [Suspect]
     Active Substance: REMDESIVIR
     Indication: COVID-19 PNEUMONIA
     Dosage: ?          OTHER FREQUENCY:ONE TIME;?
     Route: 042
     Dates: start: 20200825, end: 20200825
  11. FENTANYL IV [Concomitant]
     Active Substance: FENTANYL
     Dates: start: 20200825
  12. NOREPINEPHRINE IV [Concomitant]
     Dates: start: 20200825
  13. DOXYCYCLINE 100MG IV [Concomitant]
     Dates: start: 20200825
  14. HEPARIN [Concomitant]
     Active Substance: HEPARIN SODIUM
     Dates: start: 20200825
  15. OXYCODONE 10MG TABLET [Concomitant]
     Active Substance: OXYCODONE HYDROCHLORIDE
     Dates: start: 20200825
  16. VASOPRESSIN IV [Concomitant]
     Dates: start: 20200825
  17. MIDAZOLAM IV [Concomitant]
     Dates: start: 20200825, end: 20200825

REACTIONS (2)
  - Therapy interrupted [None]
  - Alanine aminotransferase increased [None]

NARRATIVE: CASE EVENT DATE: 20200826
